FAERS Safety Report 4960881-X (Version None)
Quarter: 2006Q1

REPORT INFORMATION
  Report Type: 
  Country: None (occurrence: None)
  Receive Date: 20060328
  Receipt Date: 20060313
  Transmission Date: 20060701
  Serious: Yes (Other)
  Sender: FDA-Public Use
  Company Number: 2006006224

PATIENT
  Age: 57 Year
  Sex: Female
  Weight: 95 kg

DRUGS (4)
  1. ZELDOX (CAPSULES) (ZIPRASIDONE) [Suspect]
     Indication: BIPOLAR DISORDER
     Dosage: 80 MG (40 MG, 2 IN 1 D), ORAL
     Route: 048
     Dates: start: 20051202, end: 20051222
  2. TREVILOR (VENLAFAXINE HYDROCHLORIDE) [Concomitant]
  3. ZOPICLONE (ZOPICLONE) [Concomitant]
  4. ALL OTHER THERAPEUTIC PRODUCTS (ALL OTHER THERAPEUTIC PRODUCTS) [Concomitant]

REACTIONS (7)
  - DERMATITIS ALLERGIC [None]
  - FEELING HOT [None]
  - HEADACHE [None]
  - HYPERTENSION [None]
  - MALAISE [None]
  - RASH [None]
  - TREMOR [None]
